FAERS Safety Report 7945225-3 (Version None)
Quarter: 2011Q4

REPORT INFORMATION
  Report Type: 
  Country: None (occurrence: None)
  Receive Date: 20111129
  Receipt Date: 20110517
  Transmission Date: 20120403
  Serious: No
  Sender: FDA-Public Use
  Company Number: US-GLAXOSMITHKLINE-A0927616A

PATIENT
  Age: 66 Year
  Sex: Female

DRUGS (11)
  1. SPIRONOLACTONE [Concomitant]
  2. CALCIUM [Concomitant]
  3. BUSPIRONE [Concomitant]
  4. ASPIRIN [Concomitant]
  5. ALENDRONATE SODIUM [Concomitant]
  6. AMLODIPINE [Concomitant]
  7. NEXIUM [Concomitant]
  8. METHOCARBAMOL [Concomitant]
  9. SIMVASTATIN [Concomitant]
  10. FLOVENT [Suspect]
     Indication: SINUSITIS
     Dosage: 1PUFF TWICE PER DAY
     Route: 055
     Dates: start: 20110301
  11. LYRICA [Concomitant]

REACTIONS (2)
  - THERAPEUTIC RESPONSE DECREASED [None]
  - BACK PAIN [None]
